FAERS Safety Report 23356379 (Version 1)
Quarter: 2024Q1

REPORT INFORMATION
  Report Type: Spontaneous
  Country: PT (occurrence: PT)
  Receive Date: 20240102
  Receipt Date: 20240102
  Transmission Date: 20240410
  Serious: Yes (Death)
  Sender: FDA-Public Use
  Company Number: None

PATIENT
  Age: 72 Year
  Sex: Male

DRUGS (8)
  1. QUETIAPINE FUMARATE [Suspect]
     Active Substance: QUETIAPINE FUMARATE
     Indication: Confusional state
     Dates: start: 20230912, end: 20231107
  2. RISPERIDONE [Suspect]
     Active Substance: RISPERIDONE
     Indication: Confusional state
     Dates: start: 20230912, end: 20231007
  3. DIAZEPAM [Concomitant]
     Active Substance: DIAZEPAM
     Dates: start: 20230912
  4. ACETAMINOPHEN [Concomitant]
     Active Substance: ACETAMINOPHEN
     Dosage: SOS
  5. TIAMINA [Concomitant]
     Dates: start: 20230912
  6. METHIMAZOLE [Concomitant]
     Active Substance: METHIMAZOLE
  7. PANTOPRAZOLE SODIUM [Concomitant]
     Active Substance: PANTOPRAZOLE SODIUM
  8. HALOPERIDOL [Concomitant]
     Active Substance: HALOPERIDOL

REACTIONS (1)
  - Neuroleptic malignant syndrome [Fatal]

NARRATIVE: CASE EVENT DATE: 20231006
